FAERS Safety Report 9681258 (Version 1)
Quarter: 2013Q4

REPORT INFORMATION
  Report Type: Report from Study
  Country: US (occurrence: US)
  Receive Date: 20131111
  Receipt Date: 20131111
  Transmission Date: 20140711
  Serious: Yes (Death)
  Sender: FDA-Public Use
  Company Number: US-ROCHE-1297211

PATIENT
  Age: 61 Year
  Sex: Female

DRUGS (13)
  1. AVASTIN [Suspect]
     Indication: HEPATIC CANCER
     Route: 042
     Dates: start: 20101220
  2. AVASTIN [Suspect]
     Route: 042
     Dates: start: 20110119
  3. AVASTIN [Suspect]
     Route: 042
     Dates: start: 20101203
  4. DECADRON [Concomitant]
     Route: 042
     Dates: start: 20101220
  5. DECADRON [Concomitant]
     Route: 065
     Dates: start: 20110119
  6. ZOFRAN [Concomitant]
     Route: 042
     Dates: start: 20101220
  7. ZOFRAN [Concomitant]
     Route: 065
     Dates: start: 20110119
  8. OXALIPLATIN [Concomitant]
     Dosage: 120-177 MG DOSING
     Route: 042
     Dates: start: 20101220
  9. OXALIPLATIN [Concomitant]
     Route: 065
     Dates: start: 20110119
  10. MYLANTA 2GO [Concomitant]
     Route: 065
  11. BENTYL [Concomitant]
     Route: 065
  12. DEXTROSE [Concomitant]
     Route: 042
     Dates: start: 20101220
  13. DEXTROSE [Concomitant]
     Route: 065
     Dates: start: 20110119

REACTIONS (5)
  - Death [Fatal]
  - Dizziness [Recovered/Resolved]
  - Dyspnoea [Recovered/Resolved]
  - Abdominal discomfort [Unknown]
  - Chest discomfort [Unknown]
